FAERS Safety Report 6309848-X (Version None)
Quarter: 2009Q3

REPORT INFORMATION
  Report Type: 
  Country: None (occurrence: None)
  Receive Date: 20090811
  Receipt Date: 20090706
  Transmission Date: 20100115
  Serious: No
  Sender: FDA-Public Use
  Company Number: 1000007225

PATIENT
  Age: 49 Year
  Sex: Female

DRUGS (12)
  1. SAVELLA [Suspect]
     Indication: FIBROMYALGIA
     Dosage: 12.5 MG (12.5 MG, 1 IN 1 D), ORAL, 25 MG (12.5 MG, 2 IN 1 D) ORAL, 50 MG (25 MG, 2 IN 1 D), ORAL
     Route: 048
     Dates: start: 20090528, end: 20090528
  2. SAVELLA [Suspect]
     Indication: FIBROMYALGIA
     Dosage: 12.5 MG (12.5 MG, 1 IN 1 D), ORAL, 25 MG (12.5 MG, 2 IN 1 D) ORAL, 50 MG (25 MG, 2 IN 1 D), ORAL
     Route: 048
     Dates: start: 20090529, end: 20090530
  3. SAVELLA [Suspect]
     Indication: FIBROMYALGIA
     Dosage: 12.5 MG (12.5 MG, 1 IN 1 D), ORAL, 25 MG (12.5 MG, 2 IN 1 D) ORAL, 50 MG (25 MG, 2 IN 1 D), ORAL
     Route: 048
     Dates: start: 20090531, end: 20090603
  4. SAVELLA [Suspect]
     Indication: FIBROMYALGIA
     Dosage: 100 MG (50 MG, 2 IN 1 D), ORAL;
     Route: 048
     Dates: start: 20090604, end: 20090604
  5. SAVELLA [Suspect]
     Indication: FIBROMYALGIA
     Dosage: 6.25 MG (6.25 MG, 1 IN 1 D), ORAL; 12.5 MG (6.25 MG,2 IN 1 D) ORAL
     Route: 048
     Dates: start: 20090624, end: 20090624
  6. SAVELLA [Suspect]
     Indication: FIBROMYALGIA
     Dosage: 6.25 MG (6.25 MG, 1 IN 1 D), ORAL; 12.5 MG (6.25 MG,2 IN 1 D) ORAL
     Route: 048
     Dates: start: 20090625, end: 20090626
  7. SAVELLA [Suspect]
     Indication: FIBROMYALGIA
     Dosage: 25 MG (12.5 MG,2 IN 1 D), ORAL
     Route: 048
     Dates: start: 20090627, end: 20090629
  8. LEXAPRO [Concomitant]
  9. NEURONTIN [Concomitant]
  10. BACLOFEN [Concomitant]
  11. LORTAB [Concomitant]
  12. VALIUM [Concomitant]

REACTIONS (6)
  - ASTHENIA [None]
  - BLOOD PRESSURE INCREASED [None]
  - DIZZINESS [None]
  - FEELING ABNORMAL [None]
  - HEADACHE [None]
  - HEART RATE INCREASED [None]
